FAERS Safety Report 6641661-6 (Version None)
Quarter: 2010Q1

REPORT INFORMATION
  Report Type: 
  Country: None (occurrence: None)
  Receive Date: 20100316
  Receipt Date: 20100302
  Transmission Date: 20100710
  Serious: No
  Sender: FDA-Public Use
  Company Number: 230112J10USA

PATIENT
  Age: 59 Year
  Sex: Female

DRUGS (2)
  1. REBIF [Suspect]
     Indication: MULTIPLE SCLEROSIS
     Dosage: 44 MCG, 3 IN 1 WEEKS, SUBCUTANEOUS
     Route: 058
     Dates: start: 20100112
  2. BACILLUS CALMETTE-GUERIN (VACCINE, BACILLUS CALMETTE-GUERIN ATTENUATED [Concomitant]

REACTIONS (1)
  - NO ADVERSE EVENT [None]
